FAERS Safety Report 23515662 (Version 2)
Quarter: 2024Q2

REPORT INFORMATION
  Report Type: Report from Study
  Country: US (occurrence: US)
  Receive Date: 20240213
  Receipt Date: 20240516
  Transmission Date: 20240716
  Serious: No
  Sender: FDA-Public Use
  Company Number: US-AstraZeneca-CH-00560136A

PATIENT
  Sex: Male

DRUGS (1)
  1. SOLIRIS [Suspect]
     Active Substance: ECULIZUMAB
     Indication: Myasthenia gravis
     Dosage: UNK
     Route: 042

REACTIONS (6)
  - Eye irritation [Unknown]
  - Viral infection [Unknown]
  - Pyrexia [Unknown]
  - Oropharyngeal pain [Unknown]
  - Eyelid ptosis [Unknown]
  - Visual impairment [Unknown]
